FAERS Safety Report 9605899 (Version 2)
Quarter: 2013Q4

REPORT INFORMATION
  Report Type: Spontaneous
  Country: PL (occurrence: PL)
  Receive Date: 20131008
  Receipt Date: 20131018
  Transmission Date: 20140711
  Serious: Yes (Hospitalization, Other)
  Sender: FDA-Public Use
  Company Number: PL-UCBSA-099234

PATIENT
  Sex: Male

DRUGS (3)
  1. CIMZIA [Suspect]
     Indication: RHEUMATOID ARTHRITIS
     Route: 058
     Dates: start: 20120523, end: 20130912
  2. METHOTREXATE [Concomitant]
     Indication: RHEUMATOID ARTHRITIS
     Dosage: 25 MG/WEEK
     Route: 048
     Dates: start: 20070725, end: 20130919
  3. METYPRED [Concomitant]
     Indication: RHEUMATOID ARTHRITIS
     Dosage: 4 MG
     Route: 048
     Dates: start: 20070725, end: 20130922

REACTIONS (10)
  - Pyrexia [Recovering/Resolving]
  - Serositis [Recovering/Resolving]
  - Mouth ulceration [Recovering/Resolving]
  - Pericardial effusion [Unknown]
  - Pleural effusion [Unknown]
  - Spleen disorder [Unknown]
  - Leukopenia [Recovering/Resolving]
  - Lupus-like syndrome [Unknown]
  - Ascites [Unknown]
  - Lymphadenopathy [Unknown]
